APPROVED DRUG PRODUCT: MEGESTROL ACETATE
Active Ingredient: MEGESTROL ACETATE
Strength: 20MG
Dosage Form/Route: TABLET;ORAL
Application: A074621 | Product #002 | TE Code: AB
Applicant: BARR LABORATORIES INC
Approved: Aug 16, 1996 | RLD: No | RS: No | Type: RX